FAERS Safety Report 8321777-9 (Version None)
Quarter: 2012Q2

REPORT INFORMATION
  Report Type: 
  Country: None (occurrence: None)
  Receive Date: 20120430
  Receipt Date: 20120426
  Transmission Date: 20120825
  Serious: No
  Sender: FDA-Public Use
  Company Number: US-ROXANE LABORATORIES, INC.-2012-RO-01150RO

PATIENT
  Age: 74 Year
  Sex: Female

DRUGS (1)
  1. LOSARTAN POTASSIUM [Suspect]
     Indication: HYPERTENSION
     Dosage: 50 MG
     Route: 048

REACTIONS (4)
  - HEART RATE INCREASED [None]
  - HEADACHE [None]
  - ASTHENIA [None]
  - PARAESTHESIA [None]
